FAERS Safety Report 5692813-3 (Version None)
Quarter: 2008Q2

REPORT INFORMATION
  Report Type: 
  Country: None (occurrence: None)
  Receive Date: 20080401
  Receipt Date: 20071116
  Transmission Date: 20081010
  Serious: Yes (Death)
  Sender: FDA-Public Use
  Company Number: 2008EU000550

PATIENT
  Age: 30 Year
  Sex: Male

DRUGS (3)
  1. TACROLIMUS [Suspect]
     Indication: RENAL TRANSPLANT
  2. VALGANCICLOVIR HCL [Concomitant]
  3. COTRIM [Concomitant]

REACTIONS (10)
  - BRONCHOPULMONARY ASPERGILLOSIS [None]
  - CANDIDIASIS [None]
  - GASTROINTESTINAL ANGIODYSPLASIA [None]
  - HAEMODIALYSIS [None]
  - KAPOSI'S SARCOMA [None]
  - MENINGITIS MENINGOCOCCAL [None]
  - MULTI-ORGAN FAILURE [None]
  - PANCYTOPENIA [None]
  - PULMONARY HAEMORRHAGE [None]
  - RESPIRATORY FAILURE [None]
